FAERS Safety Report 4875021-5 (Version None)
Quarter: 2006Q1

REPORT INFORMATION
  Report Type: 
  Country: None (occurrence: None)
  Receive Date: 20060104
  Receipt Date: 20051220
  Transmission Date: 20060701
  Serious: Yes (Other)
  Sender: FDA-Public Use
  Company Number: 220507

PATIENT
  Age: 25 Year
  Sex: Male

DRUGS (9)
  1. RITUXAN [Suspect]
     Indication: NON-HODGKIN'S LYMPHOMA
     Dosage: 540 MG, UNK; INTRAVENOUS
     Route: 042
     Dates: start: 20050114, end: 20050502
  2. DOXORUBICIN HYDROCHLORIDE [Suspect]
     Indication: NON-HODGKIN'S LYMPHOMA
     Dosage: 72 MG, INTRAVENOUS
     Route: 042
     Dates: start: 20050114, end: 20050425
  3. CYCLOPHOSPHAMIDE [Suspect]
     Indication: NON-HODGKIN'S LYMPHOMA
     Dosage: 1080 MG, INTRAVENOUS
     Route: 042
     Dates: start: 20050107, end: 20050425
  4. ONCOVIN [Suspect]
     Indication: NON-HODGKIN'S LYMPHOMA
     Dosage: 2MG, INTRAVENOUS
     Route: 042
     Dates: start: 20050131, end: 20050425
  5. PREDNISOLONE [Suspect]
     Indication: NON-HODGKIN'S LYMPHOMA
     Dosage: 85 MG, INTRAVENOUS
     Route: 042
     Dates: start: 20050107, end: 20050425
  6. GASLON N (IRSOGLADINE MALEATE) [Concomitant]
  7. FAMOTIDINE [Concomitant]
  8. CEFOZOPRAN HYDROCHLORIDE [Concomitant]
  9. BETAMETHASONE [Concomitant]

REACTIONS (6)
  - ANOREXIA [None]
  - HEADACHE [None]
  - NEUTROPHIL COUNT DECREASED [None]
  - PRURITUS [None]
  - PYREXIA [None]
  - VOMITING [None]
